FAERS Safety Report 8895468 (Version 3)
Quarter: 2013Q4

REPORT INFORMATION
  Report Type: Spontaneous
  Country: FR (occurrence: FR)
  Receive Date: 20121108
  Receipt Date: 20131121
  Transmission Date: 20140711
  Serious: Yes (Death, Hospitalization)
  Sender: FDA-Public Use
  Company Number: FR-B.I. PHARMACEUTICALS,INC./RIDGEFIELD-2012-FF-01563FF

PATIENT
  Age: 79 Year
  Sex: Female

DRUGS (10)
  1. PRADAXA [Suspect]
     Indication: ATRIAL FIBRILLATION
     Dosage: 220 MG
     Route: 048
     Dates: end: 201210
  2. PRADAXA [Suspect]
     Indication: ARRHYTHMIA
  3. DIGOXINE [Concomitant]
     Indication: ARRHYTHMIA
  4. ALDACTONE [Concomitant]
     Indication: HYPERTENSION
  5. LASILIX [Concomitant]
     Indication: HYPERTENSION
  6. ELISOR [Concomitant]
     Indication: HYPERCHOLESTEROLAEMIA
  7. INEXIUM [Concomitant]
     Indication: ABDOMINAL PAIN UPPER
  8. INEXIUM [Concomitant]
     Indication: ANXIETY
  9. SEROPRAM [Concomitant]
     Indication: DEPRESSION
  10. DEROXAT [Concomitant]
     Indication: DEPRESSION

REACTIONS (3)
  - Cerebral haemorrhage [Fatal]
  - Haemorrhagic stroke [Fatal]
  - Coma [Unknown]
